FAERS Safety Report 6305306-7 (Version None)
Quarter: 2009Q3

REPORT INFORMATION
  Report Type: 
  Country: None (occurrence: None)
  Receive Date: 20090807
  Receipt Date: 20080727
  Transmission Date: 20100115
  Serious: Yes (Other)
  Sender: FDA-Public Use
  Company Number: 1000005396

PATIENT
  Age: 52 Year
  Sex: Male
  Weight: 75 kg

DRUGS (4)
  1. ESCITALOPRAM [Suspect]
     Indication: ANXIETY
     Dosage: 10 MG, (10 MG,1 IN 1 D),ORAL
     Route: 048
     Dates: start: 20071114, end: 20080206
  2. ESCITALOPRAM [Suspect]
     Indication: DEPRESSION
     Dosage: 10 MG, (10 MG,1 IN 1 D),ORAL
     Route: 048
     Dates: start: 20071114, end: 20080206
  3. ESCITALOPRAM [Suspect]
     Indication: ANXIETY
     Dosage: 20 MG (20 MG,1 IN 1 D),ORAL
     Route: 048
     Dates: start: 20080207, end: 20080505
  4. ESCITALOPRAM [Suspect]
     Indication: DEPRESSION
     Dosage: 20 MG (20 MG,1 IN 1 D),ORAL
     Route: 048
     Dates: start: 20080207, end: 20080505

REACTIONS (4)
  - BRUXISM [None]
  - DRUG INEFFECTIVE [None]
  - DYSPHEMIA [None]
  - TREMOR [None]
